FAERS Safety Report 19096188 (Version 1)
Quarter: 2021Q2

REPORT INFORMATION
  Report Type: Spontaneous
  Country: FR (occurrence: FR)
  Receive Date: 20210406
  Receipt Date: 20210406
  Transmission Date: 20210717
  Serious: Yes (Other)
  Sender: FDA-Public Use
  Company Number: FR-ABBVIE-21K-056-3846266-00

PATIENT
  Age: 67 Year
  Sex: Male
  Weight: 100 kg

DRUGS (17)
  1. NORMACOL [Concomitant]
     Active Substance: HERBALS\KARAYA GUM
     Indication: PRODUCT USED FOR UNKNOWN INDICATION
  2. MOVICOL [Concomitant]
     Active Substance: POLYETHYLENE GLYCOL 3350\POTASSIUM CHLORIDE\SODIUM BICARBONATE\SODIUM CHLORIDE
     Indication: PRODUCT USED FOR UNKNOWN INDICATION
  3. ATRACURIUM [Concomitant]
     Active Substance: ATRACURIUM
     Indication: PRODUCT USED FOR UNKNOWN INDICATION
     Route: 041
     Dates: start: 20210222, end: 20210225
  4. NOZINAN [Concomitant]
     Active Substance: LEVOMEPROMAZINE
     Indication: PRODUCT USED FOR UNKNOWN INDICATION
     Route: 065
     Dates: start: 20210226
  5. ZELITREX [Concomitant]
     Active Substance: VALACYCLOVIR HYDROCHLORIDE
     Indication: PRODUCT USED FOR UNKNOWN INDICATION
     Dates: end: 20210302
  6. PARACETAMOL [Concomitant]
     Active Substance: ACETAMINOPHEN
     Indication: PRODUCT USED FOR UNKNOWN INDICATION
     Route: 065
  7. NOREPINEPHRINE. [Concomitant]
     Active Substance: NOREPINEPHRINE
     Indication: PRODUCT USED FOR UNKNOWN INDICATION
     Route: 041
     Dates: start: 20210301, end: 20210306
  8. CLOXACILLINE [Concomitant]
     Active Substance: CLOXACILLIN
     Indication: SUPERINFECTION BACTERIAL
     Dates: start: 20210301, end: 20210311
  9. SEVOFLURANE. [Suspect]
     Active Substance: SEVOFLURANE
     Indication: SEDATION
     Dosage: 5 A 12 ML/HEURE / 0.5 A 1.4%
     Route: 055
     Dates: start: 20210226, end: 20210305
  10. CEFOTAXIME BASE [Concomitant]
     Active Substance: CEFOTAXIME SODIUM
     Indication: SUPERINFECTION BACTERIAL
     Route: 065
     Dates: start: 20210227, end: 20210228
  11. LOVENOX [Concomitant]
     Active Substance: ENOXAPARIN SODIUM
     Indication: COVID-19 PNEUMONIA
     Route: 058
     Dates: start: 20210210
  12. OGASTORO [Concomitant]
     Active Substance: LANSOPRAZOLE
     Indication: PRODUCT USED FOR UNKNOWN INDICATION
  13. SUFENTANIL [Concomitant]
     Active Substance: SUFENTANIL
     Indication: PRODUCT USED FOR UNKNOWN INDICATION
     Route: 042
     Dates: start: 20210222, end: 20210313
  14. MIDAZOLAM. [Concomitant]
     Active Substance: MIDAZOLAM
     Indication: SEDATION
     Route: 042
     Dates: start: 20210222, end: 20210227
  15. GENTAMICINE [Concomitant]
     Active Substance: GENTAMICIN
     Indication: BACTERAEMIA
     Dates: start: 20210228, end: 20210303
  16. AUGMENTIN [Concomitant]
     Active Substance: AMOXICILLIN\CLAVULANATE POTASSIUM
     Indication: BACTERAEMIA
     Route: 065
     Dates: start: 20210228, end: 20210301
  17. PROPOFOL. [Concomitant]
     Active Substance: PROPOFOL
     Indication: PRODUCT USED FOR UNKNOWN INDICATION
     Route: 041
     Dates: start: 20210226

REACTIONS (1)
  - Nephrogenic diabetes insipidus [Recovering/Resolving]

NARRATIVE: CASE EVENT DATE: 20210303
